FAERS Safety Report 16389045 (Version 1)
Quarter: 2019Q2

REPORT INFORMATION
  Report Type: Spontaneous
  Country: BE (occurrence: BE)
  Receive Date: 20190604
  Receipt Date: 20190604
  Transmission Date: 20190711
  Serious: Yes (Other)
  Sender: FDA-Public Use
  Company Number: BE-GLAXOSMITHKLINE-BE2019GSK085438

PATIENT
  Age: 52 Year
  Sex: Female

DRUGS (11)
  1. PROPANOLOL [Suspect]
     Active Substance: PROPRANOLOL HYDROCHLORIDE
     Indication: PALPITATIONS
     Dosage: UNK
     Route: 065
  2. BETASERC [Suspect]
     Active Substance: BETAHISTINE
     Indication: VERTIGO
     Dosage: UNK
     Route: 065
  3. NIQUITIN [Suspect]
     Active Substance: NICOTINE
     Indication: SMOKING CESSATION THERAPY
     Dosage: UNK, 21 MG
     Route: 065
     Dates: start: 20180908, end: 201902
  4. NIQUITIN [Suspect]
     Active Substance: NICOTINE
     Dosage: UNK, 14 MG
     Route: 065
     Dates: start: 201902, end: 20190429
  5. PANTOMED (DEXPANTHENOL) [Suspect]
     Active Substance: DEXPANTHENOL
     Indication: DISCOMFORT
     Dosage: UNK, 1 IN THE MORNING
     Route: 065
  6. BECLOMETASONE DIPROPIONATE + FORMOTEROL FUMARATE DIHYDRATE NEXTHALER I [Suspect]
     Active Substance: BECLOMETHASONE DIPROPIONATE\FORMOTEROL FUMARATE
     Indication: DYSPNOEA
     Dosage: UNK
     Route: 065
  7. PANTOMED (DEXPANTHENOL) [Suspect]
     Active Substance: DEXPANTHENOL
     Dosage: 1 DF, BID
     Route: 065
  8. SERETIDE [Suspect]
     Active Substance: FLUTICASONE PROPIONATE\SALMETEROL XINAFOATE
     Indication: DYSPNOEA
     Dosage: UNK, MORNING + EVENING
     Route: 065
  9. SULPIRIDE [Suspect]
     Active Substance: SULPIRIDE
     Indication: DISCOMFORT
     Dosage: 1 DF, BID
     Route: 065
  10. SPASMOMEN [Suspect]
     Active Substance: OTILONIUM BROMIDE
     Indication: DISCOMFORT
     Dosage: UNK, 1MORNING, 1 AT NOON, 1 EVENING
     Route: 065
  11. DAFALGAN [Concomitant]
     Active Substance: ACETAMINOPHEN
     Indication: PRODUCT USED FOR UNKNOWN INDICATION
     Dosage: UNK
     Route: 065

REACTIONS (26)
  - Palpitations [Unknown]
  - Nausea [Unknown]
  - Abdominal distension [Unknown]
  - Dyspnoea [Unknown]
  - Headache [Unknown]
  - Ear pain [Unknown]
  - Hot flush [Unknown]
  - Incorrect product administration duration [Unknown]
  - Hyperhidrosis [Unknown]
  - Vomiting [Unknown]
  - Vertigo [Unknown]
  - Arthralgia [Unknown]
  - Stress [Unknown]
  - Flatulence [Unknown]
  - Blood pressure abnormal [Unknown]
  - Pain [Unknown]
  - Anxiety [Unknown]
  - Pharyngeal swelling [Unknown]
  - Eye pain [Unknown]
  - Insomnia [Unknown]
  - Abdominal pain upper [Unknown]
  - Muscular weakness [Unknown]
  - Tremor [Unknown]
  - Hypertension [Unknown]
  - Diarrhoea [Unknown]
  - Aphonia [Unknown]

NARRATIVE: CASE EVENT DATE: 2018
